FAERS Safety Report 6726758-4 (Version None)
Quarter: 2010Q2

REPORT INFORMATION
  Report Type: 
  Country: None (occurrence: None)
  Receive Date: 20100516
  Receipt Date: 20100503
  Transmission Date: 20101027
  Serious: Yes (Hospitalization)
  Sender: FDA-Public Use
  Company Number: US-JNJFOC-20100503067

PATIENT
  Age: 13 Month
  Sex: Male
  Weight: 11.34 kg

DRUGS (2)
  1. CONCENTRATED TYLENOL INFANT DROPS [Suspect]
     Indication: TEETHING
     Dosage: EVERY 6-8 HOURS
     Route: 048
  2. CONCENTRATED TYLENOL INFANT DROPS [Suspect]
     Indication: PYREXIA
     Dosage: EVERY 6-8 HOURS
     Route: 048

REACTIONS (3)
  - ABASIA [None]
  - DRUG TOXICITY [None]
  - PRODUCT QUALITY ISSUE [None]
